FAERS Safety Report 7761611-9 (Version None)
Quarter: 2011Q3

REPORT INFORMATION
  Report Type: 
  Country: None (occurrence: None)
  Receive Date: 20110920
  Receipt Date: 20110909
  Transmission Date: 20111222
  Serious: Yes (Other)
  Sender: FDA-Public Use
  Company Number: US-CELGENEUS-163-21880-11091282

PATIENT
  Sex: Female

DRUGS (9)
  1. POTASSIUM CHLORIDE [Concomitant]
     Dosage: 20 MILLIGRAM
     Route: 065
  2. DEXAMETHASONE [Concomitant]
     Dosage: 4 MILLIGRAM
     Route: 065
  3. REVLIMID [Suspect]
     Dosage: 10 MILLIGRAM
     Route: 048
     Dates: start: 20090701
  4. REVLIMID [Suspect]
     Indication: MULTIPLE MYELOMA
     Dosage: 25 MILLIGRAM
     Route: 048
     Dates: start: 20090201
  5. REVLIMID [Suspect]
     Dosage: 5 MILLIGRAM
     Route: 048
     Dates: start: 20100501
  6. NORVASC [Concomitant]
     Dosage: 5 MILLIGRAM
     Route: 065
  7. ZOMETA [Concomitant]
     Dosage: 4 MILLIGRAM
     Route: 065
  8. OMEPRAZOLE [Concomitant]
     Dosage: 10 MILLIGRAM
     Route: 065
  9. ATENOLOL [Concomitant]
     Dosage: 50 MILLIGRAM
     Route: 065

REACTIONS (2)
  - MOBILITY DECREASED [None]
  - PAIN IN EXTREMITY [None]
